FAERS Safety Report 18314663 (Version 2)
Quarter: 2020Q4

REPORT INFORMATION
  Report Type: Spontaneous
  Country: BE (occurrence: BE)
  Receive Date: 20200925
  Receipt Date: 20201007
  Transmission Date: 20210113
  Serious: Yes (Disabling, Other)
  Sender: FDA-Public Use
  Company Number: BE-ASTRAZENECA-2020SF21815

PATIENT
  Age: 25152 Day
  Sex: Male
  Weight: 104 kg

DRUGS (16)
  1. CLOPIDOGREL [Concomitant]
     Active Substance: CLOPIDOGREL BISULFATE
     Route: 065
     Dates: start: 20180308
  2. ISOTEN MINOR [Concomitant]
     Active Substance: BISOPROLOL FUMARATE
     Indication: MYOCARDIAL INFARCTION
     Dosage: 1
     Route: 048
     Dates: start: 201803
  3. COVERSYL [Concomitant]
     Active Substance: PERINDOPRIL
     Indication: HYPERTENSION
     Dosage: 1
     Route: 048
     Dates: start: 2005
  4. FASENRA [Suspect]
     Active Substance: BENRALIZUMAB
     Indication: ASTHMA
     Dosage: 30.0MG UNKNOWN
     Route: 058
     Dates: start: 20200909, end: 20200909
  5. UNI DIAMICRON [Concomitant]
     Active Substance: GLICLAZIDE
     Indication: DIABETES MELLITUS
     Dosage: 2,1
     Route: 048
     Dates: start: 2010
  6. LORAZEPAM. [Concomitant]
     Active Substance: LORAZEPAM
     Indication: DEPRESSION
     Dosage: 1
     Route: 048
     Dates: start: 2005
  7. FASENRA [Suspect]
     Active Substance: BENRALIZUMAB
     Indication: ASTHMA
     Dosage: 30.0MG UNKNOWN
     Route: 058
     Dates: start: 20200708, end: 20200708
  8. ALLOPURINOL. [Concomitant]
     Active Substance: ALLOPURINOL
     Indication: GOUT
     Dosage: 300
     Route: 048
     Dates: start: 2005
  9. ASAFLOW [Concomitant]
     Active Substance: ASPIRIN
     Indication: EMBOLISM ARTERIAL
     Dosage: 1
     Route: 048
     Dates: start: 20150910
  10. FUROSEMIDE. [Concomitant]
     Active Substance: FUROSEMIDE
     Indication: HYPERTENSION
     Dosage: 1
     Route: 048
     Dates: start: 2018
  11. SIPRALEXA [Concomitant]
     Active Substance: ESCITALOPRAM OXALATE
     Indication: DEPRESSION
     Dosage: 1
     Route: 065
     Dates: start: 2005
  12. GLUCOPHAGE [Concomitant]
     Active Substance: METFORMIN HYDROCHLORIDE
     Indication: DIABETES MELLITUS
     Dosage: 850 ,3
     Route: 048
     Dates: start: 2010
  13. AERIUS [Concomitant]
     Indication: ASTHMA
     Dosage: 1
     Route: 048
     Dates: start: 201811
  14. FLUTIFORM SPIRIVA RESPIMAT DUOVENT HFA [Concomitant]
     Indication: CHRONIC OBSTRUCTIVE PULMONARY DISEASE
     Route: 055
     Dates: start: 2010
  15. ZOCOR [Concomitant]
     Active Substance: SIMVASTATIN
     Indication: BLOOD CHOLESTEROL
     Dosage: 40
     Route: 048
     Dates: start: 20160430
  16. ACETYLCYSTEINE. [Concomitant]
     Active Substance: ACETYLCYSTEINE
     Indication: CHRONIC OBSTRUCTIVE PULMONARY DISEASE
     Dosage: 1
     Route: 048
     Dates: start: 2005

REACTIONS (4)
  - Pruritus [Recovering/Resolving]
  - Headache [Recovered/Resolved]
  - Priapism [Recovering/Resolving]
  - Dysuria [Recovering/Resolving]

NARRATIVE: CASE EVENT DATE: 20200709
